FAERS Safety Report 4381572-2 (Version None)
Quarter: 2004Q2

REPORT INFORMATION
  Report Type: 
  Country: None (occurrence: None)
  Receive Date: 20040621
  Receipt Date: 20031202
  Transmission Date: 20050107
  Serious: Yes (Death, Hospitalization, Disabling, Other)
  Sender: FDA-Public Use
  Company Number: GB-BRISTOL-MYERS SQUIBB COMPANY-12448478

PATIENT
  Age: 64 Year
  Sex: Female
  Weight: 48 kg

DRUGS (3)
  1. TAXOL [Suspect]
     Indication: BREAST CANCER
     Dosage: 175 MG/M^2
     Route: 042
     Dates: start: 20031125, end: 20031125
  2. TRASTUZUMAB [Concomitant]
     Indication: BREAST CANCER
     Dosage: 4 MG/KG
     Dates: start: 20031125, end: 20031125
  3. DEXAMETHASONE [Concomitant]
     Indication: LYMPHANGIOSIS CARCINOMATOSA
     Route: 048
     Dates: start: 20031105, end: 20031128

REACTIONS (3)
  - CONVULSION [None]
  - ENCEPHALITIS HERPES [None]
  - PERIPHERAL MOTOR NEUROPATHY [None]
